FAERS Safety Report 6867535-3 (Version None)
Quarter: 2010Q3

REPORT INFORMATION
  Report Type: 
  Country: None (occurrence: None)
  Receive Date: 20100722
  Receipt Date: 20100714
  Transmission Date: 20110219
  Serious: Yes (Death, Hospitalization)
  Sender: FDA-Public Use
  Company Number: GR-ABBOTT-05P-066-0297103-00

PATIENT
  Sex: Female
  Weight: 67 kg

DRUGS (5)
  1. HUMIRA [Suspect]
     Indication: RHEUMATOID ARTHRITIS
     Route: 058
     Dates: start: 20041020, end: 20050401
  2. PREZOLON [Concomitant]
     Indication: RHEUMATOID ARTHRITIS
     Dates: start: 20001010, end: 20050408
  3. ARAVA [Concomitant]
     Indication: RHEUMATOID ARTHRITIS
     Dates: start: 20040113, end: 20050408
  4. EFFEXOR [Concomitant]
     Indication: DEPRESSION
     Dates: start: 20031101, end: 20050408
  5. COMMERCIAL HUMIRA [Concomitant]
     Indication: RHEUMATOID ARTHRITIS
     Route: 058
     Dates: start: 20040329, end: 20041020

REACTIONS (3)
  - DEHYDRATION [None]
  - RENAL FAILURE [None]
  - SEPSIS [None]
